FAERS Safety Report 20969444 (Version 1)
Quarter: 2022Q2

REPORT INFORMATION
  Report Type: Spontaneous
  Country: TR (occurrence: TR)
  Receive Date: 20220616
  Receipt Date: 20220616
  Transmission Date: 20220721
  Serious: Yes (Hospitalization)
  Sender: FDA-Public Use
  Company Number: TR-TEVA-2022-TR-2045332

PATIENT
  Age: 19 Year
  Sex: Female

DRUGS (3)
  1. AMOXICILLIN\CLAVULANATE POTASSIUM [Suspect]
     Active Substance: AMOXICILLIN\CLAVULANATE POTASSIUM
     Indication: Suicide attempt
     Dosage: 875/125MG
     Route: 048
  2. ACETAMINOPHEN\CAFFEINE [Suspect]
     Active Substance: ACETAMINOPHEN\CAFFEINE
     Indication: Suicide attempt
     Dosage: 500/30MG
     Route: 048
  3. FOLIC ACID\IRON\MINERALS\VITAMINS [Suspect]
     Active Substance: FOLIC ACID\IRON\MINERALS\VITAMINS
     Indication: Suicide attempt
     Route: 048

REACTIONS (5)
  - Pre-eclampsia [Unknown]
  - Toxicity to various agents [Unknown]
  - Intentional overdose [Unknown]
  - Maternal exposure during pregnancy [Unknown]
  - Live birth [Unknown]
